FAERS Safety Report 9382051 (Version 2)
Quarter: 2013Q3

REPORT INFORMATION
  Report Type: Spontaneous
  Country: US (occurrence: US)
  Receive Date: 20130703
  Receipt Date: 20130710
  Transmission Date: 20140515
  Serious: Yes (Other)
  Sender: FDA-Public Use
  Company Number: US-ASTRAZENECA-2013SE49900

PATIENT
  Sex: Male

DRUGS (1)
  1. SYMBICORT [Suspect]
     Indication: CHRONIC OBSTRUCTIVE PULMONARY DISEASE
     Dosage: 160/4.5 MCG, FREQUENCY UNKNOWN
     Route: 055

REACTIONS (8)
  - Gait disturbance [Unknown]
  - Sinusitis [Unknown]
  - Hypoaesthesia [Unknown]
  - Paraesthesia [Unknown]
  - Influenza like illness [Unknown]
  - Back pain [Unknown]
  - Occupational asthma [Unknown]
  - Muscle spasms [Unknown]
